FAERS Safety Report 5941048-5 (Version None)
Quarter: 2008Q4

REPORT INFORMATION
  Report Type: 
  Country: None (occurrence: None)
  Receive Date: 20081104
  Receipt Date: 20081031
  Transmission Date: 20090506
  Serious: Yes (Hospitalization)
  Sender: FDA-Public Use
  Company Number: US-B.I. PHARMACEUTICALS,INC./RIDGEFIELD-2008-BP-00745BP

PATIENT
  Age: 61 Year
  Sex: Female

DRUGS (14)
  1. SPIRIVA [Suspect]
     Indication: CHRONIC OBSTRUCTIVE PULMONARY DISEASE
     Dosage: 18MCG
     Route: 055
     Dates: start: 20080106, end: 20080115
  2. SYNTHROID [Concomitant]
     Indication: THYROID DISORDER
  3. PROCARDIA XL [Concomitant]
     Indication: RAYNAUD'S PHENOMENON
  4. PREDNISONE TAB [Concomitant]
     Indication: CHRONIC OBSTRUCTIVE PULMONARY DISEASE
  5. ADVAIR DISKUS 100/50 [Concomitant]
     Indication: CHRONIC OBSTRUCTIVE PULMONARY DISEASE
  6. ESSENTIAL VITAMINS [Concomitant]
  7. URSODIOL [Concomitant]
     Indication: BILIARY CIRRHOSIS PRIMARY
  8. MIACALCIN [Concomitant]
     Indication: OSTEOPOROSIS
  9. LITHIUM CARBONATE [Concomitant]
     Indication: BIPOLAR DISORDER
  10. DUONEB [Concomitant]
     Indication: CHRONIC OBSTRUCTIVE PULMONARY DISEASE
  11. CALCIUM [Concomitant]
     Indication: OSTEOPOROSIS
  12. CO-Q10 [Concomitant]
  13. MAGNISIUM [Concomitant]
  14. VIT D3 [Concomitant]

REACTIONS (1)
  - PLATELET COUNT DECREASED [None]
